FAERS Safety Report 17871195 (Version 1)
Quarter: 2020Q2

REPORT INFORMATION
  Report Type: Spontaneous
  Country: US (occurrence: US)
  Receive Date: 20200605
  Receipt Date: 20200605
  Transmission Date: 20200714
  Serious: No
  Sender: FDA-Public Use
  Company Number: None

PATIENT
  Sex: Male

DRUGS (1)
  1. COSENTYX [Suspect]
     Active Substance: SECUKINUMAB
     Indication: RHEUMATOID ARTHRITIS
     Dosage: OTHER FREQUENCY:EVERY 28 DAYS;?
     Route: 058
     Dates: start: 2019

REACTIONS (4)
  - Device failure [None]
  - Product contamination physical [None]
  - Liquid product physical issue [None]
  - Nausea [None]
